FAERS Safety Report 4972313-6 (Version None)
Quarter: 2006Q2

REPORT INFORMATION
  Report Type: 
  Country: None (occurrence: None)
  Receive Date: 20060413
  Receipt Date: 20060405
  Transmission Date: 20061013
  Serious: Yes (Hospitalization)
  Sender: FDA-Public Use
  Company Number: NO-BOEHRINGER INGELHEIM PHARMACEUTICALS, INC.-2006-SW-00169NO

PATIENT
  Sex: Male

DRUGS (10)
  1. SPIRIVA [Suspect]
     Indication: ASTHMA
     Route: 055
     Dates: start: 20060215, end: 20060310
  2. SPIRIVA [Suspect]
     Indication: CHRONIC OBSTRUCTIVE PULMONARY DISEASE
  3. PREDNISOLONE [Concomitant]
  4. SERETIDE [Concomitant]
  5. VENTOLIN [Concomitant]
  6. VERSAL [Concomitant]
  7. TRUSOPT [Concomitant]
  8. LANSOPRAZOLE [Concomitant]
  9. BISOLVON [Concomitant]
  10. SOBRIL [Concomitant]

REACTIONS (5)
  - CHEST PAIN [None]
  - CHRONIC OBSTRUCTIVE PULMONARY DISEASE [None]
  - DRY MOUTH [None]
  - INCREASED UPPER AIRWAY SECRETION [None]
  - URINARY RETENTION [None]
